FAERS Safety Report 7230060-4 (Version None)
Quarter: 2011Q1

REPORT INFORMATION
  Report Type: 
  Country: None (occurrence: None)
  Receive Date: 20110118
  Receipt Date: 20110105
  Transmission Date: 20110831
  Serious: No
  Sender: FDA-Public Use
  Company Number: US-BIOGENIDEC-2010BI011797

PATIENT
  Age: 47 Year
  Sex: Female

DRUGS (3)
  1. TYSABRI [Suspect]
     Indication: MULTIPLE SCLEROSIS
     Route: 042
     Dates: start: 20041207, end: 20050208
  2. TYSABRI [Suspect]
     Route: 042
     Dates: start: 20091110, end: 20100330
  3. AVONEX [Concomitant]
     Indication: MULTIPLE SCLEROSIS
     Route: 030
     Dates: start: 20030101, end: 20091004

REACTIONS (6)
  - FATIGUE [None]
  - EYE MOVEMENT DISORDER [None]
  - VISION BLURRED [None]
  - HEADACHE [None]
  - MOTION SICKNESS [None]
  - PHOTOPSIA [None]
